FAERS Safety Report 4944071-2 (Version None)
Quarter: 2006Q1

REPORT INFORMATION
  Report Type: 
  Country: None (occurrence: None)
  Receive Date: 20060315
  Receipt Date: 20040308
  Transmission Date: 20060701
  Serious: Yes (Death, Other)
  Sender: FDA-Public Use
  Company Number: US-BRISTOL-MYERS SQUIBB COMPANY-12527016

PATIENT
  Age: 71 Year
  Sex: Male

DRUGS (1)
  1. COUMADIN [Suspect]
     Dosage: ON RX IN THE ^LAST FEW YEARS^. WAS KEPT ON COUMADIN, BUT THEN SOMETIME LATER EXPIRED.

REACTIONS (2)
  - HAEMORRHAGE INTRACRANIAL [None]
  - SUBDURAL HAEMATOMA [None]
